FAERS Safety Report 7823653-4 (Version None)
Quarter: 2011Q4

REPORT INFORMATION
  Report Type: 
  Country: None (occurrence: None)
  Receive Date: 20111019
  Receipt Date: 20111019
  Transmission Date: 20120403
  Serious: Yes (Other)
  Sender: FDA-Public Use
  Company Number: None

PATIENT
  Sex: Female
  Weight: 77.11 kg

DRUGS (1)
  1. LOESTRIN 24 FE [Suspect]
     Indication: CONTRACEPTION
     Dosage: 1 PILL
     Route: 048
     Dates: start: 20111002, end: 20111010

REACTIONS (17)
  - CHEST PAIN [None]
  - SWELLING [None]
  - DECREASED APPETITE [None]
  - WEIGHT INCREASED [None]
  - MUSCULAR WEAKNESS [None]
  - HALLUCINATION [None]
  - ABNORMAL DREAMS [None]
  - VISUAL IMPAIRMENT [None]
  - DEPRESSION [None]
  - ABDOMINAL PAIN UPPER [None]
  - PAIN [None]
  - HEADACHE [None]
  - DIZZINESS [None]
  - PARANOIA [None]
  - OEDEMA [None]
  - ACNE [None]
  - LYMPHADENOPATHY [None]
